FAERS Safety Report 10548845 (Version 2)
Quarter: 2014Q4

REPORT INFORMATION
  Report Type: Spontaneous
  Country: US (occurrence: US)
  Receive Date: 20141028
  Receipt Date: 20141203
  Transmission Date: 20150529
  Serious: Yes (Other)
  Sender: FDA-Public Use
  Company Number: US-BAYER-2014-155635

PATIENT
  Age: 36 Year
  Sex: Female

DRUGS (1)
  1. MIRENA [Suspect]
     Active Substance: LEVONORGESTREL
     Indication: CONTRACEPTION
     Dosage: 20 MCG/24HR, CONT
     Route: 015
     Dates: start: 201006

REACTIONS (7)
  - Cervicitis [None]
  - Vaginal discharge [None]
  - Coital bleeding [None]
  - Vaginal infection [None]
  - Bacterial vaginosis [None]
  - Dysuria [None]
  - Genital haemorrhage [None]

NARRATIVE: CASE EVENT DATE: 201410
